FAERS Safety Report 17601740 (Version 1)
Quarter: 2020Q1

REPORT INFORMATION
  Report Type: Spontaneous
  Country: US (occurrence: US)
  Receive Date: 20200331
  Receipt Date: 20200331
  Transmission Date: 20200409
  Serious: No
  Sender: FDA-Public Use
  Company Number: US-AMGEN-USASP2020050501

PATIENT
  Age: 62 Year
  Sex: Male
  Weight: 87.5 kg

DRUGS (1)
  1. NEULASTA [Suspect]
     Active Substance: PEGFILGRASTIM
     Indication: NEUTROPENIA
     Route: 065

REACTIONS (1)
  - Device leakage [Unknown]

NARRATIVE: CASE EVENT DATE: 202002
